FAERS Safety Report 20809489 (Version 1)
Quarter: 2022Q2

REPORT INFORMATION
  Report Type: Spontaneous
  Country: US (occurrence: None)
  Receive Date: 20220510
  Receipt Date: 20220510
  Transmission Date: 20220720
  Serious: Yes (Hospitalization)
  Sender: FDA-Public Use
  Company Number: None

PATIENT
  Sex: Female
  Weight: 72.4 kg

DRUGS (1)
  1. FEMARA [Suspect]
     Active Substance: LETROZOLE
     Dates: end: 20220303

REACTIONS (6)
  - Small intestinal obstruction [None]
  - Hot flush [None]
  - Hyperhidrosis [None]
  - Dizziness [None]
  - Hernia [None]
  - Leukocytosis [None]

NARRATIVE: CASE EVENT DATE: 20220303
